FAERS Safety Report 16983892 (Version 1)
Quarter: 2019Q4

REPORT INFORMATION
  Report Type: Spontaneous
  Country: IE (occurrence: IE)
  Receive Date: 20191101
  Receipt Date: 20191101
  Transmission Date: 20200122
  Serious: Yes (Other)
  Sender: FDA-Public Use
  Company Number: IE-PFIZER INC-2019469368

PATIENT
  Age: 18 Year

DRUGS (4)
  1. ADALIMUMAB [Suspect]
     Active Substance: ADALIMUMAB
     Indication: CROHN^S DISEASE
     Dosage: UNK
     Route: 058
     Dates: start: 2015, end: 2018
  2. AZATHIOPRINE. [Suspect]
     Active Substance: AZATHIOPRINE
     Dosage: 1 UNK, CYCLIC (EVERY 2 WEEKS)
  3. METHOTREXATE SODIUM. [Suspect]
     Active Substance: METHOTREXATE SODIUM
     Dosage: 1 UNK, CYCLIC (EVERY 2 WEEKS)
  4. IRON [Concomitant]
     Active Substance: IRON
     Dosage: 3 G, UNK
     Dates: start: 201905

REACTIONS (8)
  - Gastrointestinal disorder [Unknown]
  - Colitis [Unknown]
  - Large intestinal ulcer [Unknown]
  - Mucosal disorder [Unknown]
  - Ulcer [Unknown]
  - Anal fistula [Recovering/Resolving]
  - Drug ineffective [Unknown]
  - Faecal calprotectin increased [Not Recovered/Not Resolved]
